FAERS Safety Report 11810087 (Version 2)
Quarter: 2015Q4

REPORT INFORMATION
  Report Type: Spontaneous
  Country: MY (occurrence: MY)
  Receive Date: 20151208
  Receipt Date: 20151223
  Transmission Date: 20160305
  Serious: Yes (Other)
  Sender: FDA-Public Use
  Company Number: MY-WATSON-2015-26709

PATIENT
  Sex: Male

DRUGS (1)
  1. TACROLIMUS (UNKNOWN) [Suspect]
     Active Substance: TACROLIMUS
     Indication: PROPHYLAXIS AGAINST TRANSPLANT REJECTION
     Dosage: 2.5 MG, BID
     Route: 065

REACTIONS (3)
  - Ketonuria [Recovered/Resolved]
  - Glycosylated haemoglobin increased [Recovered/Resolved]
  - Ketosis [Recovered/Resolved]
